FAERS Safety Report 5216964-2 (Version None)
Quarter: 2007Q1

REPORT INFORMATION
  Report Type: 
  Country: None (occurrence: None)
  Receive Date: 20070124
  Receipt Date: 20070111
  Transmission Date: 20070707
  Serious: Yes (Hospitalization)
  Sender: FDA-Public Use
  Company Number: US-JNJFOC-20060905189

PATIENT
  Sex: Female
  Weight: 59.88 kg

DRUGS (1)
  1. ORTHO EVRA [Suspect]
     Indication: CONTRACEPTION
     Route: 062
     Dates: start: 20030301

REACTIONS (2)
  - HEPATIC ARTERY ANEURYSM [None]
  - SPLENIC ARTERY ANEURYSM [None]
